FAERS Safety Report 4835739-7 (Version None)
Quarter: 2005Q4

REPORT INFORMATION
  Report Type: 
  Country: None (occurrence: None)
  Receive Date: 20051123
  Receipt Date: 20051114
  Transmission Date: 20060501
  Serious: Yes (Disabling)
  Sender: FDA-Public Use
  Company Number: PL-ABBOTT-05P-129-0317219-00

PATIENT
  Age: 39 Year
  Sex: Male

DRUGS (1)
  1. DEPAKENE [Suspect]
     Indication: BIPOLAR DISORDER
     Dates: start: 20020101, end: 20051001

REACTIONS (1)
  - OSTEOCHONDROSIS [None]
